FAERS Safety Report 24425906 (Version 2)
Quarter: 2024Q4

REPORT INFORMATION
  Report Type: Spontaneous
  Country: FR (occurrence: FR)
  Receive Date: 20241011
  Receipt Date: 20241016
  Transmission Date: 20250115
  Serious: Yes (Other)
  Sender: EMD SERONO INC
  Company Number: None

PATIENT
  Age: 36 Year
  Sex: Female

DRUGS (5)
  1. CHORIOGONADOTROPIN ALFA [Interacting]
     Active Substance: CHORIOGONADOTROPIN ALFA
     Indication: Assisted fertilisation
     Route: 058
     Dates: start: 20240526, end: 20240526
  2. ESTRADIOL [Interacting]
     Active Substance: ESTRADIOL
     Indication: Assisted fertilisation
     Route: 048
     Dates: start: 20240508, end: 20240508
  3. FOLLITROPIN\LUTEINIZING HORMONE [Interacting]
     Active Substance: FOLLITROPIN\LUTEINIZING HORMONE
     Indication: Assisted fertilisation
     Dosage: FERTISTARTKIT 900 IU
     Route: 058
     Dates: start: 20240508, end: 20240525
  4. TRIPTORELIN [Interacting]
     Active Substance: TRIPTORELIN
     Indication: Assisted fertilisation
     Route: 058
     Dates: start: 20240526, end: 20240526
  5. GANIRELIX ACETATE [Interacting]
     Active Substance: GANIRELIX ACETATE
     Indication: Assisted fertilisation
     Dosage: FORM STRENGTH: 0.25 MG/0.5 ML
     Route: 058
     Dates: start: 20240517, end: 20240525

REACTIONS (2)
  - Immune thrombocytopenia [Recovered/Resolved]
  - Ovarian hyperstimulation syndrome [Recovered/Resolved]

NARRATIVE: CASE EVENT DATE: 20240530
